FAERS Safety Report 4981769-4 (Version None)
Quarter: 2006Q2

REPORT INFORMATION
  Report Type: 
  Country: None (occurrence: None)
  Receive Date: 20060421
  Receipt Date: 20060417
  Transmission Date: 20061013
  Serious: Yes (Disabling)
  Sender: FDA-Public Use
  Company Number: HQWYE906217FEB06

PATIENT
  Age: 47 Year
  Sex: Female
  Weight: 87.17 kg

DRUGS (3)
  1. EFFEXOR XR [Suspect]
     Indication: DEPRESSION
     Dosage: SEE  IMAGE, ORAL
     Route: 048
     Dates: end: 20040401
  2. EFFEXOR XR [Suspect]
     Indication: DEPRESSION
     Dosage: SEE  IMAGE, ORAL
     Route: 048
     Dates: start: 20040401
  3. ONE-A-DAY (ASCORBIC ACID/CYANOCOBALAMIN/ERGOCALCIFEROL/NICOTINAMIDE/PY [Concomitant]

REACTIONS (9)
  - CONSTIPATION [None]
  - DISTRACTIBILITY [None]
  - DISTURBANCE IN ATTENTION [None]
  - DRUG INEFFECTIVE [None]
  - DRY MOUTH [None]
  - IMPAIRED WORK ABILITY [None]
  - MEMORY IMPAIRMENT [None]
  - MENTAL IMPAIRMENT [None]
  - WEIGHT INCREASED [None]
